FAERS Safety Report 5369464-3 (Version None)
Quarter: 2007Q2

REPORT INFORMATION
  Report Type: 
  Country: None (occurrence: None)
  Receive Date: 20070621
  Receipt Date: 20070409
  Transmission Date: 20071010
  Serious: Yes (Other)
  Sender: FDA-Public Use
  Company Number: 2007US-06315

PATIENT
  Age: 22 Year
  Sex: Female

DRUGS (2)
  1. ISOTRETINOIN [Suspect]
     Indication: ACNE CYSTIC
     Dosage: SEE IMAGE
     Route: 048
     Dates: start: 20061030, end: 20070122
  2. ISOTRETINOIN [Suspect]
     Indication: ACNE CYSTIC
     Dosage: SEE IMAGE
     Route: 048
     Dates: start: 20070123, end: 20070302

REACTIONS (3)
  - CHEST DISCOMFORT [None]
  - DYSPNOEA [None]
  - PALPITATIONS [None]
